FAERS Safety Report 11440954 (Version 1)
Quarter: 2015Q3

REPORT INFORMATION
  Report Type: Spontaneous
  Country: HK (occurrence: None)
  Receive Date: 20150831
  Receipt Date: 20150831
  Transmission Date: 20151125
  Serious: Yes (Hospitalization)
  Sender: FDA-Public Use
  Company Number: None

PATIENT
  Age: 68 Year
  Sex: Male
  Weight: 65.6 kg

DRUGS (2)
  1. FLUTAMIDE. [Suspect]
     Active Substance: FLUTAMIDE
     Dates: start: 20110613
  2. TRIPTORELIN PAMOATE [Suspect]
     Active Substance: TRIPTORELIN PAMOATE
     Dates: start: 20110613

REACTIONS (4)
  - Haematuria [None]
  - Urinary retention [None]
  - Bladder telangiectasia [None]
  - Bladder neck obstruction [None]

NARRATIVE: CASE EVENT DATE: 20150630
